FAERS Safety Report 24703161 (Version 1)
Quarter: 2024Q4

REPORT INFORMATION
  Report Type: Spontaneous
  Country: CA (occurrence: CA)
  Receive Date: 20241205
  Receipt Date: 20241205
  Transmission Date: 20250115
  Serious: Yes (Other)
  Sender: PFIZER
  Company Number: CA-PFIZER INC-202300410605

PATIENT
  Age: 58 Year
  Sex: Male

DRUGS (3)
  1. ABRILADA [Suspect]
     Active Substance: ADALIMUMAB-AFZB
     Indication: Crohn^s disease
     Dosage: 1 DF (160MG WEEK 0, 80MG WEEK 2 THEN 40MG Q 2 WEEKS)
     Route: 058
     Dates: start: 20231020
  2. ABRILADA [Suspect]
     Active Substance: ADALIMUMAB-AFZB
     Dosage: 1 DF (160MG WEEK 0, 80MG WEEK 2 THEN 40MG Q 2 WEEKS)
     Route: 058
     Dates: start: 20231103
  3. ABRILADA [Suspect]
     Active Substance: ADALIMUMAB-AFZB
     Dosage: 1 DF (160MG WEEK 0, 80MG WEEK 2 THEN 40MG Q 2 WEEKS)
     Route: 058
     Dates: start: 20240119

REACTIONS (5)
  - Groin abscess [Unknown]
  - Fatigue [Not Recovered/Not Resolved]
  - Acne [Unknown]
  - Therapeutic response unexpected [Unknown]
  - Product dose omission in error [Unknown]

NARRATIVE: CASE EVENT DATE: 20231117
